FAERS Safety Report 20989118 (Version 1)
Quarter: 2022Q2

REPORT INFORMATION
  Report Type: Spontaneous
  Country: US (occurrence: US)
  Receive Date: 20220621
  Receipt Date: 20220621
  Transmission Date: 20220720
  Serious: No
  Sender: FDA-Public Use
  Company Number: US-SCYNEXIS, INC.-2022SCY000036

PATIENT
  Age: 39 Year
  Sex: Female

DRUGS (1)
  1. BREXAFEMME [Suspect]
     Active Substance: IBREXAFUNGERP CITRATE
     Indication: Fungal infection
     Dosage: UNK
     Route: 048
     Dates: start: 20220502, end: 20220502

REACTIONS (1)
  - Therapeutic product effect incomplete [Unknown]
